FAERS Safety Report 16881877 (Version 1)
Quarter: 2019Q4

REPORT INFORMATION
  Report Type: Spontaneous
  Country: US (occurrence: US)
  Receive Date: 20190808
  Receipt Date: 20190808
  Transmission Date: 20200122
  Serious: Yes (Hospitalization)
  Sender: FDA-Public Use
  Company Number: None

PATIENT
  Sex: Female

DRUGS (10)
  1. TORSESEMIDE [Concomitant]
  2. XELJANZ XR [Suspect]
     Active Substance: TOFACITINIB CITRATE
     Indication: RHEUMATOID ARTHRITIS
     Route: 048
     Dates: start: 20180612
  3. MULTIVITAMIN [Concomitant]
     Active Substance: VITAMINS
  4. OMERPRAZOLE [Concomitant]
     Active Substance: OMEPRAZOLE
  5. ARAVA [Concomitant]
     Active Substance: LEFLUNOMIDE
  6. VITAMIN C [Concomitant]
     Active Substance: ASCORBIC ACID
  7. FOSAMAX [Concomitant]
     Active Substance: ALENDRONATE SODIUM
  8. GABAPENTIN. [Concomitant]
     Active Substance: GABAPENTIN
  9. VESICARE [Concomitant]
     Active Substance: SOLIFENACIN SUCCINATE
  10. PREDNISONE. [Concomitant]
     Active Substance: PREDNISONE

REACTIONS (2)
  - Cyst [None]
  - Sepsis [None]
